FAERS Safety Report 12104466 (Version 2)
Quarter: 2016Q1

REPORT INFORMATION
  Report Type: Spontaneous
  Country: HU (occurrence: HU)
  Receive Date: 20160223
  Receipt Date: 20160301
  Transmission Date: 20160526
  Serious: Yes (Other)
  Sender: FDA-Public Use
  Company Number: HU-PFIZER INC-2016103122

PATIENT
  Age: 73 Year
  Sex: Male

DRUGS (4)
  1. SUTENT [Suspect]
     Active Substance: SUNITINIB MALATE
     Indication: METASTATIC RENAL CELL CARCINOMA
     Dosage: 50 MG, 1X DAILY, 1ST CYCLE, ACCORDING TO 4/2 SCHEMA
     Route: 048
     Dates: start: 20160210, end: 20160216
  2. TANYDON [Concomitant]
     Indication: HYPERTENSION
     Dosage: IN THE MORNING
  3. SUTENT [Suspect]
     Active Substance: SUNITINIB MALATE
     Dosage: 50 MG, 1X DAILY, 1ST CYCLE, ACCORDING TO 4/2 SCHEMA
     Route: 048
     Dates: start: 20160222
  4. MIBETA [Concomitant]
     Indication: HYPERTENSION
     Dosage: 40 MG, IN THE EVENING

REACTIONS (2)
  - Hypertension [Recovered/Resolved]
  - Somnolence [Unknown]

NARRATIVE: CASE EVENT DATE: 20160211
